FAERS Safety Report 7607709-7 (Version None)
Quarter: 2011Q3

REPORT INFORMATION
  Report Type: 
  Country: None (occurrence: None)
  Receive Date: 20110713
  Receipt Date: 20110527
  Transmission Date: 20111222
  Serious: Yes (Other)
  Sender: FDA-Public Use
  Company Number: PHHY2011PH11243

PATIENT
  Sex: Female

DRUGS (2)
  1. SANGOBION [Concomitant]
     Dosage: UNK
     Dates: start: 20101201
  2. GLEEVEC [Suspect]
     Indication: CHRONIC MYELOID LEUKAEMIA
     Dosage: 400 MG, PER DAY
     Dates: end: 20101201

REACTIONS (2)
  - MATERNAL EXPOSURE DURING PREGNANCY [None]
  - RUPTURED ECTOPIC PREGNANCY [None]
